FAERS Safety Report 8274513-9 (Version None)
Quarter: 2012Q2

REPORT INFORMATION
  Report Type: 
  Country: None (occurrence: None)
  Receive Date: 20120411
  Receipt Date: 20120404
  Transmission Date: 20120825
  Serious: No
  Sender: FDA-Public Use
  Company Number: US-TEVA-331953USA

PATIENT
  Sex: Male

DRUGS (3)
  1. PULMICORT [Concomitant]
  2. PROAIR HFA [Suspect]
     Indication: ASTHMA
     Route: 055
  3. OMEPRAZOLE [Concomitant]

REACTIONS (1)
  - PSYCHOMOTOR HYPERACTIVITY [None]
